FAERS Safety Report 17850041 (Version 1)
Quarter: 2020Q2

REPORT INFORMATION
  Report Type: Spontaneous
  Country: US (occurrence: US)
  Receive Date: 20200602
  Receipt Date: 20200602
  Transmission Date: 20200714
  Serious: Yes (Hospitalization, Disabling)
  Sender: FDA-Public Use
  Company Number: None

PATIENT
  Age: 38 Year
  Sex: Female
  Weight: 56.25 kg

DRUGS (5)
  1. PROPRANOLOL XR [Concomitant]
  2. TAMOXIFEN [Concomitant]
     Active Substance: TAMOXIFEN
  3. VITAMIN D [Concomitant]
     Active Substance: VITAMIN D NOS
  4. MIRENA [Suspect]
     Active Substance: LEVONORGESTREL
     Indication: CONTRACEPTION
     Dates: start: 20130901, end: 20200602
  5. MELATONIN [Concomitant]
     Active Substance: MELATONIN

REACTIONS (2)
  - Breast hyperplasia [None]
  - Intraductal proliferative breast lesion [None]

NARRATIVE: CASE EVENT DATE: 20190801
